FAERS Safety Report 5833029-7 (Version None)
Quarter: 2008Q3

REPORT INFORMATION
  Report Type: 
  Country: None (occurrence: None)
  Receive Date: 20080805
  Receipt Date: 20080721
  Transmission Date: 20090109
  Serious: Yes (Death, Life-Threatening, Hospitalization)
  Sender: FDA-Public Use
  Company Number: DK-ASTRAZENECA-2008SE02308

PATIENT
  Age: 8573 Day
  Sex: Male

DRUGS (1)
  1. SEROQUEL PROLONG [Suspect]
     Indication: RESTLESSNESS
     Route: 048
     Dates: start: 20080429, end: 20080502

REACTIONS (2)
  - RESPIRATORY DEPRESSION [None]
  - VOMITING [None]
